FAERS Safety Report 7422820-1 (Version None)
Quarter: 2011Q2

REPORT INFORMATION
  Report Type: 
  Country: None (occurrence: None)
  Receive Date: 20110419
  Receipt Date: 20090329
  Transmission Date: 20111010
  Serious: Yes (Death, Hospitalization, Other)
  Sender: FDA-Public Use
  Company Number: US-BAYER-200916417NA

PATIENT
  Age: 73 Year
  Sex: Male
  Weight: 102.4 kg

DRUGS (14)
  1. ATENOLOL [Concomitant]
     Dosage: 50 MG, UNK
     Route: 048
     Dates: start: 20000101
  2. LASIX [Concomitant]
     Dosage: 40 MG BY CPB
     Dates: start: 20030227, end: 20030227
  3. HEPARIN [Concomitant]
     Dosage: 35000 U, UNK
     Route: 042
     Dates: start: 20030227, end: 20030227
  4. HEPARIN [Concomitant]
     Dosage: 10000 U BY CBP
     Dates: start: 20030227, end: 20030227
  5. VERAPAMIL [Concomitant]
     Dosage: 240 MG, UNK
     Route: 048
     Dates: start: 20000101
  6. LOPID [Concomitant]
     Dosage: 600 MG, UNK
     Route: 048
     Dates: start: 20030225
  7. ASPIRIN [Concomitant]
     Dosage: 325 MG, UNK
     Route: 048
     Dates: end: 20030225
  8. LASIX [Concomitant]
     Dosage: 20 MG, UNK
     Route: 042
     Dates: start: 20030227
  9. PRAZOSIN HCL [Concomitant]
     Dosage: 1 MG, UNK
     Route: 048
     Dates: start: 20000101, end: 20030225
  10. ALTACE [Concomitant]
     Dosage: 1.25 MG, UNK
     Route: 048
     Dates: start: 20030225
  11. VANCOMYCIN [Concomitant]
     Dosage: UNK
     Route: 042
     Dates: start: 20030227
  12. LOPRESSOR [Concomitant]
     Dosage: 25 MG, UNK
     Route: 048
     Dates: start: 20030226
  13. TRASYLOL [Suspect]
     Indication: CORONARY ARTERY BYPASS
     Dosage: INITAIL TEST DOSE AND LOADING DOSE OF 200 ML
     Dates: start: 20030227, end: 20030227
  14. HYDROCHLOROTHIAZIDE [Concomitant]
     Dosage: 12.5 MG, UNK
     Route: 048
     Dates: start: 20030101, end: 20030225

REACTIONS (4)
  - INJURY [None]
  - CEREBROVASCULAR ACCIDENT [None]
  - DEPRESSION [None]
  - RENAL FAILURE [None]
